FAERS Safety Report 9528396 (Version 1)
Quarter: 2013Q1

REPORT INFORMATION
  Report Type: Spontaneous
  Country: US (occurrence: None)
  Receive Date: 20130314
  Receipt Date: 20130314
  Transmission Date: 20140127
  Serious: No
  Sender: FDA-Public Use
  Company Number: 1208USA011771

PATIENT
  Age: 47 Year
  Sex: Female

DRUGS (3)
  1. VICTRELIS [Suspect]
     Indication: HEPATITIS C
     Dates: start: 20120709
  2. RIBASPHERE [Suspect]
     Indication: HEPATITIS C
     Dates: start: 20120610
  3. PEGASYS [Suspect]
     Indication: HEPATITIS C
     Dates: start: 20120610

REACTIONS (19)
  - Haemoglobin abnormal [None]
  - Eating disorder [None]
  - Feeling abnormal [None]
  - Lethargy [None]
  - Constipation [None]
  - Malaise [None]
  - Pain [None]
  - Anaemia [None]
  - Asthenia [None]
  - Fatigue [None]
  - Dizziness [None]
  - Dizziness [None]
  - Fatigue [None]
  - Dysgeusia [None]
  - Dry mouth [None]
  - Weight decreased [None]
  - Irritability [None]
  - Myalgia [None]
  - Dysgeusia [None]
